FAERS Safety Report 18191094 (Version 2)
Quarter: 2021Q3

REPORT INFORMATION
  Report Type: Spontaneous
  Country: US (occurrence: US)
  Receive Date: 20200824
  Receipt Date: 20210908
  Transmission Date: 20211014
  Serious: No
  Sender: FDA-Public Use
  Company Number: US-ROCHE-2585133

PATIENT
  Sex: Female

DRUGS (1)
  1. ALECENSA [Suspect]
     Active Substance: ALECTINIB HYDROCHLORIDE
     Indication: NEOPLASM MALIGNANT
     Route: 065
     Dates: start: 20200303

REACTIONS (6)
  - Insomnia [Unknown]
  - Fatigue [Unknown]
  - Dry skin [Unknown]
  - Weight increased [Unknown]
  - Constipation [Unknown]
  - Swelling [Unknown]
